FAERS Safety Report 5040978-9 (Version None)
Quarter: 2006Q2

REPORT INFORMATION
  Report Type: 
  Country: None (occurrence: None)
  Receive Date: 20060629
  Receipt Date: 20060629
  Transmission Date: 20061013
  Serious: Yes (Hospitalization)
  Sender: FDA-Public Use
  Company Number: None

PATIENT
  Age: 61 Year
  Sex: Male
  Weight: 95.2554 kg

DRUGS (1)
  1. COUMADIN [Suspect]
     Indication: CARDIOMYOPATHY
     Dosage: 2.5 MG DAILY EXCEPT 5 MG TU PO
     Route: 048
     Dates: start: 20060109, end: 20060607

REACTIONS (3)
  - BRAIN NATRIURETIC PEPTIDE INCREASED [None]
  - INTERNATIONAL NORMALISED RATIO INCREASED [None]
  - WHITE BLOOD CELL COUNT INCREASED [None]
